FAERS Safety Report 8732866 (Version 3)
Quarter: 2013Q2

REPORT INFORMATION
  Report Type: Spontaneous
  Country: US (occurrence: US)
  Receive Date: 20120820
  Receipt Date: 20130404
  Transmission Date: 20140414
  Serious: No
  Sender: FDA-Public Use
  Company Number: US-009507513-1208USA007380

PATIENT
  Age: 38 Year
  Sex: Male
  Weight: 83.9 kg

DRUGS (2)
  1. LOTRIMIN AF LIQUID SPRAY [Suspect]
     Indication: TINEA PEDIS
     Dosage: UNK, BID
     Route: 061
     Dates: start: 201203, end: 201205
  2. LOTRIMIN AF LIQUID SPRAY [Suspect]
     Indication: MEDICAL OBSERVATION

REACTIONS (2)
  - Drug ineffective [Unknown]
  - Incorrect drug administration duration [Unknown]
